FAERS Safety Report 9081466 (Version 1)
Quarter: 2013Q1

REPORT INFORMATION
  Report Type: Report from Study
  Country: US (occurrence: US)
  Receive Date: 20130130
  Receipt Date: 20130130
  Transmission Date: 20140127
  Serious: No
  Sender: FDA-Public Use
  Company Number: US-ABBOTT-12P-163-0979713-00

PATIENT
  Sex: Male

DRUGS (3)
  1. HUMIRA [Suspect]
     Indication: PSORIATIC ARTHROPATHY
     Dosage: 2 SYRINGES ON DAY ONE
     Route: 058
     Dates: start: 201208
  2. HUMIRA [Suspect]
     Dosage: 1 SYRINGE ON DAY 5
     Route: 058
  3. HUMIRA [Suspect]
     Route: 058

REACTIONS (2)
  - Injection site pain [Unknown]
  - Injection site pain [Unknown]
